FAERS Safety Report 5821229-1 (Version None)
Quarter: 2008Q3

REPORT INFORMATION
  Report Type: 
  Country: None (occurrence: None)
  Receive Date: 20080723
  Receipt Date: 20080717
  Transmission Date: 20090109
  Serious: Yes (Hospitalization)
  Sender: FDA-Public Use
  Company Number: APP200800690

PATIENT
  Age: 71 Year
  Sex: Female

DRUGS (1)
  1. HEPARIN SODIUM INJECTION [Suspect]
     Indication: CARDIAC OPERATION
     Dosage: VARYING DOSES, INTRAVENOUS
     Route: 042
     Dates: start: 20080619

REACTIONS (1)
  - HEPARIN-INDUCED THROMBOCYTOPENIA [None]
